FAERS Safety Report 5670382-1 (Version None)
Quarter: 2008Q1

REPORT INFORMATION
  Report Type: 
  Country: None (occurrence: None)
  Receive Date: 20080313
  Receipt Date: 20080229
  Transmission Date: 20080703
  Serious: Yes (Other)
  Sender: FDA-Public Use
  Company Number: 230197J08USA

PATIENT
  Age: 39 Year
  Sex: Female
  Weight: 99.7913 kg

DRUGS (8)
  1. REBIF [Suspect]
     Indication: MULTIPLE SCLEROSIS
     Dosage: 22 MCG, 3 IN 1 WEEKS, SUBCUTANEOUS
     Route: 058
     Dates: start: 20071221
  2. TYLENOL (COTYLENOL) [Concomitant]
  3. TRAMADOL HCL [Concomitant]
  4. CITALOPRAM HYDROBROMIDE [Concomitant]
  5. SEROQUEL [Concomitant]
  6. BACLOFEN [Concomitant]
  7. ALBUTEROL [Concomitant]
  8. XOPENEX [Concomitant]

REACTIONS (5)
  - CONDITION AGGRAVATED [None]
  - GLUCOSE TOLERANCE IMPAIRED [None]
  - MUSCLE SPASMS [None]
  - NAUSEA [None]
  - VOMITING [None]
